FAERS Safety Report 25047036 (Version 2)
Quarter: 2025Q3

REPORT INFORMATION
  Report Type: Report from Study
  Country: US (occurrence: US)
  Receive Date: 20250306
  Receipt Date: 20250802
  Transmission Date: 20251020
  Serious: Yes (Other)
  Sender: ALEXION PHARMACEUTICALS
  Company Number: US-ASTRAZENECA-202502USA024318US

PATIENT
  Age: 38 Year
  Sex: Female

DRUGS (1)
  1. STRENSIQ [Suspect]
     Active Substance: ASFOTASE ALFA
     Indication: Hypophosphataemia
     Dosage: 1 MILLIGRAM/KILOGRAM, SIX TIMES/WEEK
     Route: 065

REACTIONS (10)
  - Ophthalmic herpes zoster [Unknown]
  - Dysarthria [Unknown]
  - Hemiparesis [Unknown]
  - Facial paralysis [Unknown]
  - Herpes zoster [Unknown]
  - Cellulitis [Unknown]
  - Upper respiratory tract infection [Unknown]
  - Nervous system disorder [Unknown]
  - Migraine [Unknown]
  - Fatigue [Unknown]

NARRATIVE: CASE EVENT DATE: 20240911
